FAERS Safety Report 22610770 (Version 1)
Quarter: 2023Q2

REPORT INFORMATION
  Report Type: Spontaneous
  Country: TW (occurrence: TW)
  Receive Date: 20230616
  Receipt Date: 20230616
  Transmission Date: 20230721
  Serious: Yes (Hospitalization, Other)
  Sender: FDA-Public Use
  Company Number: TW-DSPHARMA-2023SMP009557

PATIENT
  Age: 5 Decade
  Sex: Female

DRUGS (2)
  1. LATUDA [Suspect]
     Active Substance: LURASIDONE HYDROCHLORIDE
     Indication: Schizoaffective disorder
     Dosage: 40 MG, QD
     Route: 048
  2. LATUDA [Suspect]
     Active Substance: LURASIDONE HYDROCHLORIDE
     Dosage: 20 MG, QD
     Route: 048

REACTIONS (4)
  - Leukopenia [Recovering/Resolving]
  - Neutropenia [Recovering/Resolving]
  - Off label use [Unknown]
  - Wrong technique in product usage process [Unknown]
